FAERS Safety Report 21758191 (Version 1)
Quarter: 2022Q4

REPORT INFORMATION
  Report Type: Spontaneous
  Country: HR (occurrence: HR)
  Receive Date: 20221221
  Receipt Date: 20221221
  Transmission Date: 20230113
  Serious: Yes (Hospitalization)
  Sender: FDA-Public Use
  Company Number: HR-CELLTRION INC.-2022HR021311

PATIENT

DRUGS (1)
  1. TRUXIMA [Suspect]
     Active Substance: RITUXIMAB-ABBS
     Indication: Product used for unknown indication
     Dosage: 700 MG
     Route: 042
     Dates: start: 20221109

REACTIONS (4)
  - Feeling hot [Unknown]
  - Oxygen saturation decreased [Unknown]
  - Chills [Unknown]
  - Throat tightness [Unknown]

NARRATIVE: CASE EVENT DATE: 20221109
